FAERS Safety Report 9030179 (Version 1)
Quarter: 2013Q1

REPORT INFORMATION
  Report Type: Spontaneous
  Country: US (occurrence: US)
  Receive Date: 20130125
  Receipt Date: 20130125
  Transmission Date: 20140127
  Serious: No
  Sender: FDA-Public Use
  Company Number: US-PFIZER INC-2013028221

PATIENT
  Age: 58 Year
  Sex: Male

DRUGS (13)
  1. SUTENT [Suspect]
     Indication: CARCINOID TUMOUR
     Dosage: 12.5 MG, UNK
     Dates: start: 20130111
  2. ASPIRIN [Concomitant]
     Dosage: UNK
  3. CALCIUM WITH VITAMIN D [Concomitant]
     Dosage: UNK
  4. CALTRATE [Concomitant]
     Dosage: UNK
  5. GLUCOSAMINE CHONDROITIN COMPLEX [Concomitant]
     Dosage: UNK
  6. HYDROCHLOROTHIAZIDE [Concomitant]
     Dosage: UNK
  7. IRON [Concomitant]
     Dosage: UNK
  8. LISINOPRIL [Concomitant]
     Dosage: UNK
  9. MAGNESIUM CITRATE [Concomitant]
     Dosage: UNK
  10. OMEGA 3 [Concomitant]
     Dosage: UNK
  11. POTASSIUM CHLORIDE [Concomitant]
     Dosage: UNK
  12. SANDOSTATIN [Concomitant]
     Dosage: UNK
  13. VIAGRA [Concomitant]
     Dosage: UNK

REACTIONS (1)
  - Hypersensitivity [Unknown]
